FAERS Safety Report 20842841 (Version 1)
Quarter: 2022Q2

REPORT INFORMATION
  Report Type: Report from Study
  Country: US (occurrence: US)
  Receive Date: 20220518
  Receipt Date: 20220518
  Transmission Date: 20220721
  Serious: No
  Sender: FDA-Public Use
  Company Number: US-RECORDATI RARE DISEASE INC.-2022001701

PATIENT

DRUGS (6)
  1. CYSTADROPS [Suspect]
     Active Substance: CYSTEAMINE HYDROCHLORIDE
     Indication: Cystinosis
     Dosage: 2 GTT DROPS, QID
     Route: 047
     Dates: start: 202012, end: 20220119
  2. PROCYSBI [Concomitant]
     Active Substance: CYSTEAMINE BITARTRATE
     Indication: Cystinosis
  3. ZOFRAN [Concomitant]
     Active Substance: ONDANSETRON HYDROCHLORIDE
     Indication: Nausea
  4. LEVOXYL [Concomitant]
     Active Substance: LEVOTHYROXINE SODIUM
     Indication: Hypothyroidism
  5. POTASSIUM PHOSPHATE, MONOBASIC [Concomitant]
     Active Substance: POTASSIUM PHOSPHATE, MONOBASIC
     Indication: Cystinosis
  6. VITAMINS [Concomitant]
     Active Substance: VITAMINS
     Indication: Hypovitaminosis

REACTIONS (5)
  - Eye irritation [Not Recovered/Not Resolved]
  - Vision blurred [Not Recovered/Not Resolved]
  - Eye pain [Unknown]
  - Therapy cessation [Recovered/Resolved]
  - Product use complaint [Recovered/Resolved]

NARRATIVE: CASE EVENT DATE: 20220119
